FAERS Safety Report 5742971-7 (Version None)
Quarter: 2008Q2

REPORT INFORMATION
  Report Type: 
  Country: None (occurrence: None)
  Receive Date: 20080519
  Receipt Date: 20080512
  Transmission Date: 20081010
  Serious: Yes (Other)
  Sender: FDA-Public Use
  Company Number: US-ASTRAZENECA-2008UW09789

PATIENT
  Age: 34 Year
  Sex: Female

DRUGS (6)
  1. SEROQUEL [Suspect]
     Indication: BIPOLAR I DISORDER
     Route: 048
     Dates: end: 20070101
  2. SEROQUEL [Suspect]
     Route: 048
     Dates: start: 20071101
  3. ABILIFY [Concomitant]
  4. LAMICTAL [Concomitant]
  5. ZYPREXA [Concomitant]
  6. PROZAC [Concomitant]

REACTIONS (2)
  - PITUITARY TUMOUR [None]
  - SEDATION [None]
